FAERS Safety Report 9659589 (Version 1)
Quarter: 2013Q4

REPORT INFORMATION
  Report Type: Spontaneous
  Country: US (occurrence: None)
  Receive Date: 20131029
  Receipt Date: 20131029
  Transmission Date: 20140711
  Serious: Yes (Other)
  Sender: FDA-Public Use
  Company Number: ADR-2013-01948

PATIENT
  Sex: Female

DRUGS (1)
  1. BACLOFEN [Suspect]

REACTIONS (4)
  - Wound [None]
  - Patient-device incompatibility [None]
  - Impaired healing [None]
  - Adverse event [None]
